FAERS Safety Report 17411148 (Version 2)
Quarter: 2020Q3

REPORT INFORMATION
  Report Type: Spontaneous
  Country: US (occurrence: US)
  Receive Date: 20200212
  Receipt Date: 20200924
  Transmission Date: 20201102
  Serious: Yes (Other)
  Sender: FDA-Public Use
  Company Number: US-RIGEL PHARMACEUTICALS, INC.-2019FOS000665

PATIENT
  Sex: Female

DRUGS (3)
  1. TAVALISSE [Suspect]
     Active Substance: FOSTAMATINIB
     Indication: IMMUNE THROMBOCYTOPENIA
     Dosage: 150 MG, QD
     Route: 048
     Dates: start: 2019
  2. TAVALISSE [Suspect]
     Active Substance: FOSTAMATINIB
     Indication: VULVAL CANCER
     Dosage: 150 MG, QD
     Route: 048
     Dates: start: 2019
  3. TAVALISSE [Suspect]
     Active Substance: FOSTAMATINIB
     Indication: ANAEMIA
     Dosage: UNK
     Route: 048
     Dates: start: 20190923, end: 2019

REACTIONS (6)
  - Nasopharyngitis [Unknown]
  - Cough [Unknown]
  - Neoplasm malignant [Unknown]
  - Decreased activity [Unknown]
  - Diarrhoea [Not Recovered/Not Resolved]
  - Constipation [Not Recovered/Not Resolved]

NARRATIVE: CASE EVENT DATE: 2019
